FAERS Safety Report 7916924-4 (Version None)
Quarter: 2011Q4

REPORT INFORMATION
  Report Type: 
  Country: None (occurrence: None)
  Receive Date: 20111114
  Receipt Date: 20111101
  Transmission Date: 20120403
  Serious: Yes (Death)
  Sender: FDA-Public Use
  Company Number: CIP-2011-00910

PATIENT

DRUGS (6)
  1. OXALIPLATIN [Suspect]
     Indication: METASTASIS
     Dosage: (85 MG/M2)
  2. OXALIPLATIN [Suspect]
     Indication: NEOPLASM
     Dosage: (85 MG/M2)
  3. CAPECITABINE [Suspect]
     Indication: NEOPLASM
  4. CAPECITABINE [Suspect]
     Indication: METASTASIS
  5. IRINOTECAN HCL [Suspect]
     Indication: METASTASIS
     Dosage: (180 MG/M2)
  6. IRINOTECAN HCL [Suspect]
     Indication: NEOPLASM
     Dosage: (180 MG/M2)

REACTIONS (2)
  - TOXICITY TO VARIOUS AGENTS [None]
  - LUNG DISORDER [None]
